FAERS Safety Report 5505168-1 (Version None)
Quarter: 2007Q4

REPORT INFORMATION
  Report Type: 
  Country: None (occurrence: None)
  Receive Date: 20071102
  Receipt Date: 20071023
  Transmission Date: 20080405
  Serious: Yes (Hospitalization)
  Sender: FDA-Public Use
  Company Number: JP-ASTRAZENECA-2007AP06604

PATIENT
  Age: 20455 Day
  Sex: Female
  Weight: 57 kg

DRUGS (3)
  1. CRESTOR [Suspect]
     Indication: HYPERLIPIDAEMIA
     Route: 048
     Dates: start: 20070201, end: 20070328
  2. CALBLOCK [Suspect]
     Route: 048
     Dates: start: 20061207, end: 20070513
  3. CALBLOCK [Suspect]
     Route: 048
     Dates: start: 20070514, end: 20070910

REACTIONS (1)
  - HEPATIC FUNCTION ABNORMAL [None]
